FAERS Safety Report 17266489 (Version 1)
Quarter: 2020Q1

REPORT INFORMATION
  Report Type: Spontaneous
  Country: FR (occurrence: FR)
  Receive Date: 20200114
  Receipt Date: 20200114
  Transmission Date: 20200409
  Serious: Yes (Hospitalization)
  Sender: FDA-Public Use
  Company Number: FR-ROCHE-2516865

PATIENT
  Age: 74 Year
  Sex: Male
  Weight: 78 kg

DRUGS (3)
  1. CARBOPLATINE [Suspect]
     Active Substance: CARBOPLATIN
     Indication: PERITONEAL MESOTHELIOMA MALIGNANT
     Route: 042
     Dates: start: 20191115, end: 20191115
  2. AVASTIN [Suspect]
     Active Substance: BEVACIZUMAB
     Indication: PERITONEAL MESOTHELIOMA MALIGNANT
     Dosage: 25 MG/ML
     Route: 042
     Dates: start: 20191115, end: 20191115
  3. ALIMTA [Suspect]
     Active Substance: PEMETREXED DISODIUM
     Indication: PERITONEAL MESOTHELIOMA MALIGNANT
     Dosage: POWDER FOR CONCENTRATE
     Route: 042
     Dates: start: 20191115, end: 20191115

REACTIONS (3)
  - Rash maculo-papular [Recovered/Resolved]
  - Rash pruritic [Recovered/Resolved]
  - Rash erythematous [Recovered/Resolved]

NARRATIVE: CASE EVENT DATE: 20191121
